FAERS Safety Report 8243714-8 (Version None)
Quarter: 2012Q1

REPORT INFORMATION
  Report Type: 
  Country: None (occurrence: None)
  Receive Date: 20120329
  Receipt Date: 20110322
  Transmission Date: 20120608
  Serious: Yes (Other)
  Sender: FDA-Public Use
  Company Number: US-MYLANLABS-2011S1005748

PATIENT
  Sex: Female

DRUGS (4)
  1. EMSAM [Suspect]
     Indication: DEPRESSION
     Dosage: CHANGED Q24H
     Route: 062
     Dates: start: 20110224, end: 20110306
  2. KLONOPIN [Concomitant]
     Indication: INSOMNIA
  3. EMSAM [Suspect]
     Dosage: CHANGED Q24H
     Route: 062
     Dates: start: 20110306, end: 20110317
  4. LAMICTAL [Suspect]
     Indication: AFFECTIVE DISORDER
     Route: 048

REACTIONS (5)
  - DEPRESSION [None]
  - DRUG INEFFECTIVE [None]
  - IMPULSIVE BEHAVIOUR [None]
  - INTENTIONAL SELF-INJURY [None]
  - SUICIDAL IDEATION [None]
